FAERS Safety Report 9552440 (Version 1)
Quarter: 2013Q3

REPORT INFORMATION
  Report Type: Spontaneous
  Country: US (occurrence: None)
  Receive Date: 20130923
  Receipt Date: 20130923
  Transmission Date: 20140515
  Serious: Yes (Other)
  Sender: FDA-Public Use
  Company Number: 2013AP008169

PATIENT
  Age: 56 Year
  Sex: Female

DRUGS (3)
  1. ANASTROZOLE [Suspect]
     Indication: BREAST CANCER FEMALE
  2. CARBOPLATIN [Suspect]
  3. PACLITAXEL [Concomitant]

REACTIONS (1)
  - Papilloedema [None]
